FAERS Safety Report 11290406 (Version 1)
Quarter: 2015Q3

REPORT INFORMATION
  Report Type: Report from Study
  Country: KE (occurrence: KE)
  Receive Date: 20150722
  Receipt Date: 20150722
  Transmission Date: 20151125
  Serious: Yes (Death, Congenital Anomaly)
  Sender: FDA-Public Use
  Company Number: KE-MYLANLABS-2015M1024156

PATIENT

DRUGS (1)
  1. EFAVIRENZ/LAMIVUDINE/TENOFOVIR [Suspect]
     Active Substance: EFAVIRENZ\LAMIVUDINE\TENOFOVIR
     Indication: HIV INFECTION
     Dosage: UNK
     Dates: start: 20130109

REACTIONS (3)
  - Stillbirth [Fatal]
  - Maternal drugs affecting foetus [None]
  - Foetal exposure during pregnancy [Fatal]

NARRATIVE: CASE EVENT DATE: 20140617
